FAERS Safety Report 4266842-0 (Version None)
Quarter: 2004Q1

REPORT INFORMATION
  Report Type: 
  Country: None (occurrence: None)
  Receive Date: 20040108
  Receipt Date: 20040108
  Transmission Date: 20041129
  Serious: No
  Sender: FDA-Public Use
  Company Number: None

PATIENT
  Age: 91 Year
  Sex: Male
  Weight: 63.5036 kg

DRUGS (4)
  1. DITROPAN XL [Suspect]
     Indication: HYPERTONIC BLADDER
     Dosage: 1 TABLET EVERY DAY
     Dates: start: 20031209, end: 20031211
  2. DITROPAN XL [Suspect]
     Indication: POLLAKIURIA
     Dosage: 1 TABLET EVERY DAY
     Dates: start: 20031209, end: 20031211
  3. DITROPAN XL [Suspect]
     Indication: HYPERTONIC BLADDER
     Dosage: 1 TABLET EVERY DAY
     Dates: start: 20031212, end: 20031213
  4. DITROPAN XL [Suspect]
     Indication: POLLAKIURIA
     Dosage: 1 TABLET EVERY DAY
     Dates: start: 20031212, end: 20031213

REACTIONS (2)
  - MICTURITION DISORDER [None]
  - URINARY RETENTION [None]
